FAERS Safety Report 16140668 (Version 5)
Quarter: 2019Q2

REPORT INFORMATION
  Report Type: Report from Study
  Country: ZA (occurrence: ZA)
  Receive Date: 20190401
  Receipt Date: 20190424
  Transmission Date: 20190711
  Serious: Yes (Life-Threatening)
  Sender: FDA-Public Use
  Company Number: ZA-SA-2019SA086184

PATIENT
  Age: 40 Year
  Sex: Female

DRUGS (5)
  1. NO STUDY DRUG GIVEN [Suspect]
     Active Substance: UNSPECIFIED INGREDIENT
     Dosage: UNK
  2. BIOPREXUM PLUS [Concomitant]
     Active Substance: INDAPAMIDE\PERINDOPRIL ARGININE
     Dosage: 10 MG, QD (BEFORE BREAKFAST)
     Dates: start: 20161025
  3. METFORMIN [Concomitant]
     Active Substance: METFORMIN HYDROCHLORIDE
     Dosage: 850 MG, TID (BEFORE BREAKFAST, BEFORE LUNCH AND BEFORE SUPPER)
     Dates: start: 20161025
  4. URBANOL [Concomitant]
     Active Substance: CLOBAZAM
     Dosage: 5 MG, HS (BED TIME)
     Dates: start: 20180219
  5. TOUJEO [Suspect]
     Active Substance: INSULIN GLARGINE
     Dosage: 31 U, BEFORE BREAKFAST, QD
     Dates: start: 20190218, end: 20190329

REACTIONS (8)
  - Dizziness [Recovered/Resolved]
  - Blood pressure increased [Recovered/Resolved]
  - Hyperglycaemia [Recovered/Resolved]
  - Drug ineffective [Unknown]
  - Nausea [Recovered/Resolved]
  - Faeces pale [Recovered/Resolved]
  - Malaise [Recovered/Resolved]
  - Blood glucose increased [Not Recovered/Not Resolved]

NARRATIVE: CASE EVENT DATE: 20190218
